FAERS Safety Report 25034093 (Version 2)
Quarter: 2025Q2

REPORT INFORMATION
  Report Type: Spontaneous
  Country: US (occurrence: US)
  Receive Date: 20250304
  Receipt Date: 20250530
  Transmission Date: 20250717
  Serious: Yes (Life-Threatening, Hospitalization)
  Sender: NOVARTIS
  Company Number: US-002147023-NVSC2025US035733

PATIENT

DRUGS (1)
  1. ILARIS [Suspect]
     Active Substance: CANAKINUMAB
     Indication: Product used for unknown indication
     Route: 065

REACTIONS (2)
  - Hepatic failure [Unknown]
  - Hepatic enzyme increased [Unknown]
